FAERS Safety Report 14840996 (Version 2)
Quarter: 2018Q2

REPORT INFORMATION
  Report Type: Report from Study
  Country: US (occurrence: US)
  Receive Date: 20180503
  Receipt Date: 20180512
  Transmission Date: 20180711
  Serious: No
  Sender: FDA-Public Use
  Company Number: US-ROCHE-2117246

PATIENT
  Sex: Female

DRUGS (2)
  1. HEPARIN [Suspect]
     Active Substance: HEPARIN SODIUM
     Indication: PROSTHETIC CARDIAC VALVE THROMBOSIS
     Route: 042
  2. ALTEPLASE. [Suspect]
     Active Substance: ALTEPLASE
     Indication: PROSTHETIC CARDIAC VALVE THROMBOSIS
     Route: 042

REACTIONS (1)
  - Menorrhagia [Recovering/Resolving]
